FAERS Safety Report 7230702-3 (Version None)
Quarter: 2011Q1

REPORT INFORMATION
  Report Type: 
  Country: None (occurrence: None)
  Receive Date: 20110105
  Receipt Date: 20101231
  Transmission Date: 20110831
  Serious: Yes (Other)
  Sender: FDA-Public Use
  Company Number: GER/UKI/10/0011984

PATIENT
  Age: 98 Year
  Sex: Female

DRUGS (10)
  1. OMEPRAZOLE [Suspect]
     Indication: GASTROOESOPHAGEAL REFLUX DISEASE
     Dosage: 10 MG, 1 IN 1 D, ORAL
     Route: 047
  2. LEVOTHYROXINE SODIUM (LEVOTHYROXINE) [Concomitant]
  3. ALCALL-D3 (LEKOVIT CA) [Concomitant]
  4. GLIPIZIDE [Concomitant]
  5. ASPIRIN [Concomitant]
  6. ISOSORBIDE MONONITRATE [Concomitant]
  7. TRIMETHOPRIM [Concomitant]
  8. SIMVASTATIN [Concomitant]
  9. NICORANDIL(NICRANDIL) [Concomitant]
  10. BISOPROLOL (BISOPROLOL) [Concomitant]

REACTIONS (9)
  - GAIT DISTURBANCE [None]
  - FALL [None]
  - ESCHERICHIA URINARY TRACT INFECTION [None]
  - HEADACHE [None]
  - GLYCOSYLATED HAEMOGLOBIN INCREASED [None]
  - HYPONATRAEMIA [None]
  - LETHARGY [None]
  - FEMUR FRACTURE [None]
  - INAPPROPRIATE ANTIDIURETIC HORMONE SECRETION [None]
